FAERS Safety Report 7526008-5 (Version None)
Quarter: 2011Q2

REPORT INFORMATION
  Report Type: 
  Country: None (occurrence: None)
  Receive Date: 20110526
  Receipt Date: 20110513
  Transmission Date: 20111010
  Serious: Yes (Congenital Anomaly)
  Sender: FDA-Public Use
  Company Number: DSM-2010-00094

PATIENT
  Sex: Female
  Weight: 7.3 kg

DRUGS (16)
  1. OLMESARTAN MEDOXOMIL [Suspect]
     Indication: PRODUCT USED FOR UNKNOWN INDICATION
     Dosage: TRANSPLACENTAL
     Route: 064
     Dates: start: 20090101, end: 20090401
  2. PRAZEPAM [Suspect]
     Indication: PRODUCT USED FOR UNKNOWN INDICATION
     Dosage: TRANSPLACENTAL
     Route: 064
     Dates: end: 20090401
  3. CITALOPRAM HYDROBROMIDE [Suspect]
     Dosage: TRANSPLACENTAL
     Route: 064
     Dates: start: 20090401, end: 20090101
  4. DOXIUM (CALCIUM DOBESILATE) (CALCIUM DOBESILATE) [Suspect]
     Indication: PRODUCT USED FOR UNKNOWN INDICATION
     Dosage: 750 MG,TRANSPLACENTAL
     Route: 064
     Dates: end: 20090401
  5. PAROXETINE HYDROCHLORIDE [Suspect]
     Indication: PRODUCT USED FOR UNKNOWN INDICATION
     Dosage: 40 MG,TRANSPLACENTAL
     Route: 064
     Dates: end: 20090401
  6. MULTI-VITAMINS VITAFIT (FOLIC ACID, CALCIUM PANTOTHENATE, VITAMINS NOS [Concomitant]
  7. LYRICA [Suspect]
     Indication: PRODUCT USED FOR UNKNOWN INDICATION
     Dosage: 75 MG,TRANSPLACENTAL
     Route: 064
     Dates: end: 20090401
  8. APIDRA (INSULIN GLULISINE) (INSULIN GLULISINE) [Concomitant]
  9. FOLIO (FOLIC ACID) (FOLIC ACID) [Concomitant]
  10. DAFALGAN (PARACETAMOL) (PARACETAMOL) [Concomitant]
  11. DICYNONE (ETAMSILATE) (ETAMSILATE) [Suspect]
     Indication: PRODUCT USED FOR UNKNOWN INDICATION
     Dosage: TRANSPLACENTAL
     Route: 064
     Dates: end: 20090401
  12. NOVORAPID (INSULIN ASPART) (INSULIN ASPART) [Concomitant]
  13. OROCAL (CALCIUM CARBONATE) (CALCIUM CARBONATE) [Concomitant]
  14. TERCIAN (CYAMEMAZINE) (CYAMEMAZINE) [Suspect]
     Indication: PRODUCT USED FOR UNKNOWN INDICATION
     Dosage: TRANSPLACENTAL
     Route: 064
  15. ANAFRANIL (CLOMIPRAMINE HYDROCHLORIDE) (CLOMIPRAMINE HYDROCHLORIDE) [Concomitant]
  16. DEXERYL (GLYCEROL/PARAFFIN) (SOFT PARAFFIN AND FAT PRODUCTS) [Concomitant]

REACTIONS (8)
  - CAESAREAN SECTION [None]
  - LIP DISORDER [None]
  - ORAL DISORDER [None]
  - MATERNAL DRUGS AFFECTING FOETUS [None]
  - ATRIAL SEPTAL DEFECT [None]
  - PREMATURE BABY [None]
  - CONGENITAL MUSCULOSKELETAL ANOMALY [None]
  - SMALL FOR DATES BABY [None]
